FAERS Safety Report 17848803 (Version 3)
Quarter: 2020Q2

REPORT INFORMATION
  Report Type: Report from Study
  Country: CR (occurrence: CR)
  Receive Date: 20200602
  Receipt Date: 20200618
  Transmission Date: 20200714
  Serious: Yes (Life-Threatening, Other)
  Sender: FDA-Public Use
  Company Number: NVSC2020CR151025

PATIENT
  Age: 64 Year
  Sex: Female
  Weight: 69 kg

DRUGS (1)
  1. EXFORGE HCT [Suspect]
     Active Substance: AMLODIPINE BESYLATE\HYDROCHLOROTHIAZIDE\VALSARTAN
     Indication: HYPERTENSION
     Dosage: 1 DF, QD (1 TABLET IN THE MORNING)
     Route: 065
     Dates: start: 2010

REACTIONS (7)
  - Arrhythmia [Unknown]
  - Atrioventricular block [Unknown]
  - Near death experience [Unknown]
  - Cardiac disorder [Unknown]
  - Bradycardia [Unknown]
  - Mobility decreased [Unknown]
  - Heart rate decreased [Unknown]

NARRATIVE: CASE EVENT DATE: 201602
